APPROVED DRUG PRODUCT: CITALOPRAM HYDROBROMIDE
Active Ingredient: CITALOPRAM HYDROBROMIDE
Strength: EQ 10MG BASE/5ML
Dosage Form/Route: SOLUTION;ORAL
Application: A077601 | Product #001
Applicant: PHARMACEUTICAL ASSOCIATES INC
Approved: Nov 15, 2005 | RLD: No | RS: No | Type: DISCN